FAERS Safety Report 5254767-3 (Version None)
Quarter: 2007Q1

REPORT INFORMATION
  Report Type: 
  Country: None (occurrence: None)
  Receive Date: 20070305
  Receipt Date: 20070226
  Transmission Date: 20070707
  Serious: Yes (Hospitalization)
  Sender: FDA-Public Use
  Company Number: DE-JNJFOC-20061102606

PATIENT
  Sex: Female
  Weight: 73 kg

DRUGS (4)
  1. INFLIXIMAB [Suspect]
     Indication: RHEUMATOID ARTHRITIS
     Dosage: THREE INFUSIONS, WEEK 0, 2 AND 6
     Route: 042
  2. DICLOFENAC SODIUM [Concomitant]
     Indication: ARTHRITIS
     Route: 065
  3. OMEPRAZOLE [Concomitant]
     Indication: GASTRIC ULCER
     Route: 065
  4. FERROSANOL [Concomitant]
     Route: 065

REACTIONS (1)
  - PULMONARY TUBERCULOSIS [None]
